FAERS Safety Report 6214607-2 (Version None)
Quarter: 2009Q2

REPORT INFORMATION
  Report Type: 
  Country: None (occurrence: None)
  Receive Date: 20090604
  Receipt Date: 20090522
  Transmission Date: 20091009
  Serious: Yes (Other)
  Sender: FDA-Public Use
  Company Number: AR-PFIZER INC-2009199139

PATIENT
  Age: 57 Year

DRUGS (4)
  1. CHAMPIX [Suspect]
     Indication: SMOKING CESSATION THERAPY
     Dosage: 1 MG, 2X/DAY
     Route: 048
     Dates: start: 20090101, end: 20090411
  2. T4 [Concomitant]
     Dosage: UNK
     Route: 048
  3. ALPLAX [Concomitant]
     Dosage: UNK
     Route: 048
  4. EZETIMIBE [Concomitant]
     Dosage: UNK
     Route: 048

REACTIONS (5)
  - APATHY [None]
  - BLOOD GLUCOSE INCREASED [None]
  - MALAISE [None]
  - NAUSEA [None]
  - POLYURIA [None]
